FAERS Safety Report 23715636 (Version 1)
Quarter: 2024Q2

REPORT INFORMATION
  Report Type: Spontaneous
  Country: FR (occurrence: FR)
  Receive Date: 20240408
  Receipt Date: 20240408
  Transmission Date: 20240716
  Serious: Yes (Other)
  Sender: FDA-Public Use
  Company Number: FR-CHEPLA-2024004241

PATIENT
  Age: 45 Year
  Sex: Male

DRUGS (12)
  1. HYDROXYUREA [Suspect]
     Active Substance: HYDROXYUREA
     Indication: Myelofibrosis
  2. VALGANCICLOVIR [Suspect]
     Active Substance: VALGANCICLOVIR
     Indication: Cytomegalovirus infection reactivation
  3. THIOTEPA [Concomitant]
     Active Substance: THIOTEPA
     Indication: Myelofibrosis
  4. ETOPOSIDE [Concomitant]
     Active Substance: ETOPOSIDE
     Indication: Myelofibrosis
  5. CYCLOPHOSPHAMIDE [Concomitant]
     Active Substance: CYCLOPHOSPHAMIDE
     Indication: Myelofibrosis
     Dosage: FROM DAY -15 TO DAY -10
  6. FLUDARABINE [Concomitant]
     Active Substance: FLUDARABINE PHOSPHATE
     Indication: Myelofibrosis
  7. FLUDARABINE [Concomitant]
     Active Substance: FLUDARABINE PHOSPHATE
     Indication: Myelofibrosis
  8. BUSULFAN [Concomitant]
     Active Substance: BUSULFAN
     Indication: Myelofibrosis
     Dosage: FROM DAY -6 TO DAY -2
     Route: 042
  9. TREOSULFAN [Concomitant]
     Active Substance: TREOSULFAN
     Dosage: DAILY DOSE: 10 GRAM PER SQUARE METRE
  10. GRAFALON [Concomitant]
     Active Substance: LAPINE T-LYMPHOCYTE IMMUNE GLOBULIN
  11. CYTARABINE\DAUNORUBICIN [Concomitant]
     Active Substance: CYTARABINE\DAUNORUBICIN
     Dosage: INDUCTION THERAPY, ON DAYS 1, 3, AND 5),??DAILY DOSE: 44 MILLIGRAM/M?
  12. CYTARABINE\DAUNORUBICIN [Concomitant]
     Active Substance: CYTARABINE\DAUNORUBICIN
     Dosage: CONSOLIDATION THERAPY? ?DAILY DOSE: 29 MILLIGRAM/M?

REACTIONS (8)
  - Cytomegalovirus infection reactivation [Recovered/Resolved]
  - Pneumonitis [Recovered/Resolved]
  - Acute myeloid leukaemia [Unknown]
  - Pneumonia [Recovered/Resolved]
  - Graft versus host disease [Recovering/Resolving]
  - Congenital aplasia [Unknown]
  - Paronychia [Recovered/Resolved]
  - Off label use [Unknown]
